FAERS Safety Report 20093268 (Version 2)
Quarter: 2021Q4

REPORT INFORMATION
  Report Type: Spontaneous
  Country: US (occurrence: US)
  Receive Date: 20211120
  Receipt Date: 20211126
  Transmission Date: 20220303
  Serious: Yes (Other)
  Sender: FDA-Public Use
  Company Number: US-AMGEN-USASP2021177831

PATIENT
  Age: 58 Year
  Sex: Female

DRUGS (2)
  1. MVASI [Suspect]
     Active Substance: BEVACIZUMAB-AWWB
     Indication: Vitreous haemorrhage
     Dosage: UNK
  2. ASPIRIN [Concomitant]
     Active Substance: ASPIRIN
     Dosage: 325 MILLIGRAM, QD
     Route: 048

REACTIONS (4)
  - Retinal ischaemia [Unknown]
  - Neovascularisation [Unknown]
  - Beta-2 glycoprotein antibody positive [Unknown]
  - Off label use [Unknown]
